FAERS Safety Report 6094598-8 (Version None)
Quarter: 2009Q1

REPORT INFORMATION
  Report Type: 
  Country: None (occurrence: None)
  Receive Date: 20090226
  Receipt Date: 20081125
  Transmission Date: 20090719
  Serious: Yes (Other)
  Sender: FDA-Public Use
  Company Number: PHHY2008AU30213

PATIENT
  Sex: Male

DRUGS (1)
  1. CLOZARIL [Suspect]
     Dosage: 300 MG
     Dates: start: 20070613, end: 20081121

REACTIONS (2)
  - CARDIOMYOPATHY [None]
  - LEFT VENTRICULAR DYSFUNCTION [None]
